FAERS Safety Report 7510792-0 (Version None)
Quarter: 2011Q2

REPORT INFORMATION
  Report Type: 
  Country: None (occurrence: None)
  Receive Date: 20110530
  Receipt Date: 20110524
  Transmission Date: 20111010
  Serious: Yes (Other)
  Sender: FDA-Public Use
  Company Number: FR-BRISTOL-MYERS SQUIBB COMPANY-15781610

PATIENT
  Age: 44 Year
  Sex: Female

DRUGS (2)
  1. FORADIL [Concomitant]
  2. IRBESARTAN [Suspect]
     Indication: NEPHROPATHY
     Route: 048
     Dates: start: 20080201

REACTIONS (1)
  - COLON CANCER [None]
